FAERS Safety Report 4494633-4 (Version None)
Quarter: 2004Q4

REPORT INFORMATION
  Report Type: 
  Country: None (occurrence: None)
  Receive Date: 20041103
  Receipt Date: 20041028
  Transmission Date: 20050328
  Serious: Yes (Disabling, Other)
  Sender: FDA-Public Use
  Company Number: 2004UW17956

PATIENT
  Age: 15 Year
  Sex: Female

DRUGS (5)
  1. SEROQUEL [Suspect]
  2. SEROQUEL [Suspect]
     Dosage: 50MG DAILY PO
     Route: 048
     Dates: end: 20040920
  3. SEROQUEL [Suspect]
     Dosage: 250-300 MG
     Dates: start: 20040901
  4. AXID [Suspect]
     Dates: start: 20040801, end: 20040823
  5. AXID [Suspect]
     Dates: start: 20040901

REACTIONS (4)
  - AGGRESSION [None]
  - AGITATION [None]
  - DRUG INTERACTION [None]
  - MEDICATION ERROR [None]
